FAERS Safety Report 15757869 (Version 1)
Quarter: 2018Q4

REPORT INFORMATION
  Report Type: Report from Study
  Country: FR (occurrence: FR)
  Receive Date: 20181225
  Receipt Date: 20181225
  Transmission Date: 20190205
  Serious: Yes (Death, Hospitalization, Other)
  Sender: FDA-Public Use
  Company Number: FR-AUROBINDO-AUR-APL-2018-062021

PATIENT
  Age: 39 Week
  Sex: Female

DRUGS (2)
  1. PHENOBARBITAL. [Concomitant]
     Active Substance: PHENOBARBITAL
     Indication: CONVULSION NEONATAL
     Dosage: UNK
     Route: 042
  2. VALPROIC ACID. [Suspect]
     Active Substance: VALPROIC ACID
     Indication: CONVULSION NEONATAL
     Dosage: 30 MILLIGRAM/KILOGRAM, DAILY
     Route: 048

REACTIONS (7)
  - Encephalopathy [Not Recovered/Not Resolved]
  - Body temperature abnormal [Unknown]
  - Somnolence neonatal [Unknown]
  - Death [Fatal]
  - Overdose [Unknown]
  - Hyperammonaemia [Recovered/Resolved with Sequelae]
  - Selective eating disorder [Unknown]
